FAERS Safety Report 8175062-9 (Version None)
Quarter: 2012Q1

REPORT INFORMATION
  Report Type: 
  Country: None (occurrence: None)
  Receive Date: 20120229
  Receipt Date: 20120222
  Transmission Date: 20120608
  Serious: Yes (Other)
  Sender: FDA-Public Use
  Company Number: PHHY2011KR111272

PATIENT
  Sex: Male

DRUGS (1)
  1. EXJADE [Suspect]
     Indication: IRON OVERLOAD
     Route: 048
     Dates: start: 20080221

REACTIONS (3)
  - MUSCULOSKELETAL STIFFNESS [None]
  - ACUTE GRAFT VERSUS HOST DISEASE [None]
  - MUSCLE SPASTICITY [None]
